FAERS Safety Report 4891958-5 (Version None)
Quarter: 2006Q1

REPORT INFORMATION
  Report Type: 
  Country: None (occurrence: None)
  Receive Date: 20060123
  Receipt Date: 20060110
  Transmission Date: 20060701
  Serious: Yes (Hospitalization, Other)
  Sender: FDA-Public Use
  Company Number: JP200512000694

PATIENT
  Age: 84 Year
  Sex: Female
  Weight: 83.3 kg

DRUGS (11)
  1. GEMZAR [Suspect]
     Indication: GALLBLADDER CANCER STAGE IV
     Dosage: 1428 MG, OTHER, INTRAVENOUS
     Route: 042
     Dates: start: 20051116, end: 20051116
  2. SEROTONE (AZASETRON HYDROCHLORIDE) AMPOULE [Concomitant]
  3. URSODIOL [Concomitant]
  4. MEVALOTIN /JPN/ (PRAVASTATIN SODIUM) [Concomitant]
  5. ALLOPURINOL [Concomitant]
  6. DIOVAN [Concomitant]
  7. CEPHADOL (DIFENIDOL HYDROCHLORIDE) [Concomitant]
  8. NORVASC/DEN/ (AMLODIPINE BESILATE) [Concomitant]
  9. ADALAT CR /THA/ (NIFEDIPINE) [Concomitant]
  10. OMEPRAZOLE [Concomitant]
  11. GASTROM (ECABET MONOSODIUM) [Concomitant]

REACTIONS (7)
  - BLOOD PRESSURE INCREASED [None]
  - CHOLANGITIS [None]
  - DIZZINESS [None]
  - INSOMNIA [None]
  - RHABDOMYOLYSIS [None]
  - URINARY INCONTINENCE [None]
  - VIRAL INFECTION [None]
